FAERS Safety Report 23261239 (Version 1)
Quarter: 2023Q4

REPORT INFORMATION
  Report Type: Spontaneous
  Country: US (occurrence: US)
  Receive Date: 20231205
  Receipt Date: 20231205
  Transmission Date: 20240109
  Serious: Yes (Other)
  Sender: FDA-Public Use
  Company Number: US-drreddys-LIT/USA/23/0187593

PATIENT
  Age: 75 Year
  Sex: Female

DRUGS (2)
  1. SIROLIMUS [Suspect]
     Active Substance: SIROLIMUS
     Indication: Skin cancer
     Dosage: TROUGH GOAL WAS 4-6 NG/ML
  2. SIROLIMUS [Suspect]
     Active Substance: SIROLIMUS
     Indication: Transplant rejection

REACTIONS (8)
  - Fanconi syndrome [Recovered/Resolved]
  - Acute kidney injury [Recovered/Resolved]
  - Hypokalaemia [Recovered/Resolved]
  - Toxicity to various agents [Recovered/Resolved]
  - Decreased appetite [Recovered/Resolved]
  - Oedema peripheral [Recovered/Resolved]
  - Fatigue [Recovered/Resolved]
  - Hypophosphataemia [Recovered/Resolved]
